FAERS Safety Report 7458125-2 (Version None)
Quarter: 2011Q2

REPORT INFORMATION
  Report Type: 
  Country: None (occurrence: None)
  Receive Date: 20110504
  Receipt Date: 20110427
  Transmission Date: 20111010
  Serious: Yes (Hospitalization)
  Sender: FDA-Public Use
  Company Number: DE-PFIZER INC-2011091368

PATIENT
  Age: 59 Year
  Sex: Male

DRUGS (5)
  1. NEURONTIN [Concomitant]
     Dosage: UNK
     Dates: start: 20110301
  2. TORISEL [Suspect]
     Indication: HEAD AND NECK CANCER
     Dosage: 25 MG, WEEKLY
     Route: 042
     Dates: start: 20110213
  3. DURAGESIC-100 [Concomitant]
     Dosage: UNK
     Dates: start: 20110106
  4. NOVALGIN [Concomitant]
     Dosage: UNK
     Dates: start: 20110119
  5. PLAVIX [Suspect]
     Indication: CEREBROVASCULAR ACCIDENT PROPHYLAXIS
     Dosage: UNK
     Dates: start: 20110301

REACTIONS (1)
  - GASTROINTESTINAL HAEMORRHAGE [None]
